FAERS Safety Report 21237115 (Version 3)
Quarter: 2022Q4

REPORT INFORMATION
  Report Type: Spontaneous
  Country: BE (occurrence: BE)
  Receive Date: 20220822
  Receipt Date: 20221031
  Transmission Date: 20230112
  Serious: Yes (Death, Hospitalization)
  Sender: FDA-Public Use
  Company Number: BE-AMGEN-NLDNI2022132181

PATIENT
  Age: 45 Year
  Sex: Male

DRUGS (4)
  1. OXYCODONE [Suspect]
     Active Substance: OXYCODONE
     Indication: Product used for unknown indication
     Dosage: 20 DOSAGE FORM, ONCE A DAY(10 DOSAGE FORM, BID)
     Route: 048
     Dates: start: 202206
  2. SOTORASIB [Suspect]
     Active Substance: SOTORASIB
     Indication: Non-small cell lung cancer stage IV
     Dosage: 960 MILLIGRAM, ONCE A DAY(960 MILLIGRAM, QD)
     Route: 048
     Dates: start: 20220713
  3. FERROUS FUMARATE [Suspect]
     Active Substance: FERROUS FUMARATE
     Indication: Product used for unknown indication
     Dosage: 200 DOSAGE FORM, ONCE A DAY(200 DOSAGE FORM, QD)
     Route: 048
     Dates: start: 202204
  4. ELIQUIS [Concomitant]
     Active Substance: APIXABAN
     Indication: Product used for unknown indication
     Dosage: 10 DOSAGE FORM, ONCE A DAY(5 DOSAGE FORM, BID)
     Route: 048
     Dates: start: 202206

REACTIONS (3)
  - Abdominal pain [Fatal]
  - Constipation [Fatal]
  - Hepatic pain [Unknown]

NARRATIVE: CASE EVENT DATE: 20220730
